FAERS Safety Report 4277685-6 (Version None)
Quarter: 2004Q1

REPORT INFORMATION
  Report Type: 
  Country: None (occurrence: None)
  Receive Date: 20040121
  Receipt Date: 20031219
  Transmission Date: 20041129
  Serious: Yes (Other)
  Sender: FDA-Public Use
  Company Number: 200322429DDC

PATIENT
  Age: 34 Year
  Sex: Female
  Weight: 81 kg

DRUGS (5)
  1. LANTUS [Suspect]
     Indication: DIABETES MELLITUS INSULIN-DEPENDENT
     Dosage: 12 UU QD SC
     Route: 058
     Dates: start: 20031021, end: 20031125
  2. INSULIN (ASPART) (NOVORAPID) [Concomitant]
  3. RAMIPRIL [Concomitant]
  4. INDAPAMIDE [Concomitant]
  5. TIMOLOL MALEATE [Concomitant]

REACTIONS (3)
  - DIABETIC KETOACIDOSIS [None]
  - NAUSEA [None]
  - VOMITING [None]
